FAERS Safety Report 15753110 (Version 2)
Quarter: 2019Q1

REPORT INFORMATION
  Report Type: Report from Study
  Country: JP (occurrence: JP)
  Receive Date: 20181221
  Receipt Date: 20190312
  Transmission Date: 20190417
  Serious: Yes (Hospitalization, Other)
  Sender: FDA-Public Use
  Company Number: JP-AMGEN-JPNCT2018182923

PATIENT
  Age: 71 Year
  Sex: Male

DRUGS (18)
  1. DARBEPOETIN ALFA [Suspect]
     Active Substance: DARBEPOETIN ALFA
     Dosage: 240 MICROGRAM, Q2WK
     Route: 058
     Dates: start: 20161220, end: 20170117
  2. SELARA [Concomitant]
     Active Substance: EPLERENONE
     Indication: CARDIAC VALVE DISEASE
     Dosage: 25 MILLIGRAM
     Route: 048
  3. FUROSEMIDE. [Concomitant]
     Active Substance: FUROSEMIDE
     Indication: CARDIAC VALVE DISEASE
     Dosage: 20 MILLIGRAM
     Route: 048
  4. DARBEPOETIN ALFA [Suspect]
     Active Substance: DARBEPOETIN ALFA
     Dosage: 240 MICROGRAM, Q4WK
     Route: 058
     Dates: start: 20170516, end: 20170711
  5. PROMAC [Concomitant]
     Active Substance: NITROFURANTOIN
     Indication: GASTRIC ULCER
     Dosage: 75 MILLIGRAM
     Route: 048
  6. FERROMIA [Concomitant]
     Active Substance: SODIUM FERROUS CITRATE
     Indication: IRON DEFICIENCY ANAEMIA
     Dosage: 50 MILLIGRAM
     Route: 048
     Dates: start: 20161220
  7. WARFARIN [Concomitant]
     Active Substance: WARFARIN
     Indication: CARDIAC VALVE DISEASE
     Dosage: 1 MILLIGRAM
     Route: 048
  8. DIART [Concomitant]
     Active Substance: AZOSEMIDE
     Indication: CARDIAC VALVE DISEASE
     Dosage: 60 MILLIGRAM
     Route: 048
  9. DARBEPOETIN ALFA [Suspect]
     Active Substance: DARBEPOETIN ALFA
     Dosage: 240 MICROGRAM, Q2WK
     Route: 058
     Dates: start: 20170207, end: 20170418
  10. MAINTATE [Concomitant]
     Active Substance: BISOPROLOL FUMARATE
     Indication: CARDIAC VALVE DISEASE
     Dosage: 2.5 MILLIGRAM
     Route: 048
  11. DARBEPOETIN ALFA [Suspect]
     Active Substance: DARBEPOETIN ALFA
     Indication: MYELODYSPLASTIC SYNDROME
     Dosage: 120 MICROGRAM
     Route: 058
     Dates: start: 20161021, end: 20161021
  12. LUPRAC [Concomitant]
     Active Substance: TORSEMIDE
     Indication: CARDIAC VALVE DISEASE
     Dosage: 8 MILLIGRAM
     Route: 048
  13. DARBEPOETIN ALFA [Suspect]
     Active Substance: DARBEPOETIN ALFA
     Dosage: 240 MICROGRAM
     Route: 058
     Dates: start: 20161108, end: 20161108
  14. RENIVACE [Concomitant]
     Active Substance: ENALAPRIL
     Indication: CARDIAC VALVE DISEASE
     Dosage: 5 MILLIGRAM
     Route: 048
  15. SAMSCA [Concomitant]
     Active Substance: TOLVAPTAN
     Indication: CARDIAC VALVE DISEASE
     Dosage: 7.5 MILLIGRAM
     Route: 048
  16. DARBEPOETIN ALFA [Suspect]
     Active Substance: DARBEPOETIN ALFA
     Dosage: 240 MICROGRAM
     Route: 058
     Dates: start: 20161125, end: 20161125
  17. DARBEPOETIN ALFA [Suspect]
     Active Substance: DARBEPOETIN ALFA
     Dosage: 240 MICROGRAM, Q2WK
     Route: 058
     Dates: start: 20170718, end: 20171010
  18. FEBURIC [Concomitant]
     Active Substance: FEBUXOSTAT
     Indication: HYPERURICAEMIA
     Dosage: 20 MILLIGRAM
     Route: 048

REACTIONS (1)
  - Gastrointestinal haemorrhage [Not Recovered/Not Resolved]

NARRATIVE: CASE EVENT DATE: 20170829
